FAERS Safety Report 24896103 (Version 3)
Quarter: 2025Q1

REPORT INFORMATION
  Report Type: Spontaneous
  Country: FR (occurrence: FR)
  Receive Date: 20250128
  Receipt Date: 20250204
  Transmission Date: 20250409
  Serious: Yes (Death, Other)
  Sender: INCYTE
  Company Number: FR-INCYTE CORPORATION-2025IN000818

PATIENT

DRUGS (2)
  1. PEMAZYRE [Suspect]
     Active Substance: PEMIGATINIB
     Indication: Hepatic cancer
     Dosage: 13.5 MILLIGRAM, QD, 14 DAYS ON, 7 DAYS OFF
     Route: 048
     Dates: start: 20241214
  2. PEMAZYRE [Suspect]
     Active Substance: PEMIGATINIB
     Indication: Metastasis

REACTIONS (4)
  - Hepatic cancer [Fatal]
  - Metastases to pancreas [Fatal]
  - Disease progression [Fatal]
  - Off label use [Unknown]

NARRATIVE: CASE EVENT DATE: 20241214
